FAERS Safety Report 13567449 (Version 1)
Quarter: 2017Q2

REPORT INFORMATION
  Report Type: Spontaneous
  Country: US (occurrence: US)
  Receive Date: 20170522
  Receipt Date: 20170522
  Transmission Date: 20170830
  Serious: No
  Sender: FDA-Public Use
  Company Number: US-PFIZER INC-2017215340

PATIENT
  Sex: Female

DRUGS (1)
  1. ZOLOFT [Suspect]
     Active Substance: SERTRALINE HYDROCHLORIDE
     Indication: MAJOR DEPRESSION
     Dosage: 25 MG, DAILY

REACTIONS (12)
  - Weight decreased [Unknown]
  - Arthralgia [Unknown]
  - Nausea [Unknown]
  - Tremor [Unknown]
  - Abdominal discomfort [Unknown]
  - Hyperhidrosis [Unknown]
  - Myalgia [Unknown]
  - Pharyngeal oedema [Unknown]
  - Asthenia [Unknown]
  - Diarrhoea [Unknown]
  - Somnolence [Unknown]
  - Presyncope [Unknown]
